FAERS Safety Report 21824189 (Version 2)
Quarter: 2023Q1

REPORT INFORMATION
  Report Type: Report from Study
  Country: CA (occurrence: CA)
  Receive Date: 20230105
  Receipt Date: 20230125
  Transmission Date: 20230417
  Serious: Yes (Other)
  Sender: FDA-Public Use
  Company Number: CA-AstraZeneca-2022A420858

PATIENT
  Sex: Female

DRUGS (1)
  1. ENHERTU [Suspect]
     Active Substance: FAM-TRASTUZUMAB DERUXTECAN-NXKI
     Indication: HER2 positive breast cancer
     Dosage: 5.4 MG/KG,ONCE EVERY 3 WEEKS (21-DAY CYCLE)
     Route: 042
     Dates: start: 20221028

REACTIONS (1)
  - Toxicity to various agents [Unknown]
